FAERS Safety Report 21033523 (Version 1)
Quarter: 2022Q3

REPORT INFORMATION
  Report Type: Spontaneous
  Country: SK (occurrence: SK)
  Receive Date: 20220701
  Receipt Date: 20220701
  Transmission Date: 20221027
  Serious: Yes (Other)
  Sender: FDA-Public Use
  Company Number: SK-SA-SAC20220616000406

PATIENT
  Sex: Female

DRUGS (6)
  1. INSULIN GLARGINE [Suspect]
     Active Substance: INSULIN GLARGINE
     Indication: Type 2 diabetes mellitus
     Dosage: UNK
     Route: 065
  2. INSULIN GLARGINE [Suspect]
     Active Substance: INSULIN GLARGINE
     Indication: Type 2 diabetes mellitus
     Dosage: 14 DOSAGE FORM, AM (14 U, IN THE MORNING)
     Route: 065
     Dates: start: 2015, end: 202012
  3. ISOPHANE INSULIN [Suspect]
     Active Substance: INSULIN NOS
     Indication: Type 2 diabetes mellitus
     Dosage: UNK UNK, Q8H (UNK UNK, TID)
     Route: 065
     Dates: start: 2016
  4. SITAGLIPTIN [Concomitant]
     Active Substance: SITAGLIPTIN
     Indication: Type 2 diabetes mellitus
     Dosage: UNK
     Route: 065
     Dates: start: 2016
  5. GLICLAZIDE [Concomitant]
     Active Substance: GLICLAZIDE
     Indication: Type 2 diabetes mellitus
     Dosage: 120 MILLIGRAM, QD (120 MG, QD)
     Route: 065
  6. METFORMIN [Concomitant]
     Active Substance: METFORMIN HYDROCHLORIDE
     Indication: Type 2 diabetes mellitus
     Dosage: 1000 MILLIGRAM, QD (1000 MG, QD)
     Route: 065

REACTIONS (6)
  - Diabetic metabolic decompensation [Recovered/Resolved]
  - Condition aggravated [Recovered/Resolved]
  - Diabetic neuropathy [Unknown]
  - Weight decreased [Unknown]
  - COVID-19 [Unknown]
  - Glycosylated haemoglobin increased [Unknown]

NARRATIVE: CASE EVENT DATE: 20201201
